FAERS Safety Report 11525558 (Version 1)
Quarter: 2015Q3

REPORT INFORMATION
  Report Type: Spontaneous
  Country: US (occurrence: US)
  Receive Date: 20150918
  Receipt Date: 20150918
  Transmission Date: 20151125
  Serious: Yes (Hospitalization, Other)
  Sender: FDA-Public Use
  Company Number: US-ABBVIE-15K-163-1462497-00

PATIENT
  Age: 68 Year
  Sex: Female
  Weight: 47.67 kg

DRUGS (6)
  1. HUMIRA [Suspect]
     Active Substance: ADALIMUMAB
     Route: 058
     Dates: end: 201504
  2. REMICADE [Suspect]
     Active Substance: INFLIXIMAB
     Route: 065
     Dates: start: 201406
  3. HUMIRA [Suspect]
     Active Substance: ADALIMUMAB
     Indication: ANKYLOSING SPONDYLITIS
     Route: 058
  4. TYLENOL [Concomitant]
     Active Substance: ACETAMINOPHEN
     Indication: PAIN
  5. BACLOFEN. [Concomitant]
     Active Substance: BACLOFEN
     Indication: MUSCLE RELAXANT THERAPY
  6. REMICADE [Suspect]
     Active Substance: INFLIXIMAB
     Indication: ANKYLOSING SPONDYLITIS
     Route: 065

REACTIONS (5)
  - Serum sickness [Recovered/Resolved]
  - Pain [Recovered/Resolved]
  - Neck pain [Not Recovered/Not Resolved]
  - Mobility decreased [Recovered/Resolved]
  - Large intestine perforation [Recovering/Resolving]

NARRATIVE: CASE EVENT DATE: 201406
